FAERS Safety Report 21529264 (Version 1)
Quarter: 2022Q4

REPORT INFORMATION
  Report Type: Other
  Country: CN (occurrence: CN)
  Receive Date: 20221031
  Receipt Date: 20221031
  Transmission Date: 20230112
  Serious: Yes (Hospitalization)
  Sender: FDA-Public Use
  Company Number: CN-GE HEALTHCARE-2022CSU007763

PATIENT
  Age: 12 Month
  Sex: Female

DRUGS (3)
  1. OMNIPAQUE [Suspect]
     Active Substance: IOHEXOL
     Indication: Diagnostic procedure
     Dosage: 75 ML, SINGLE
     Route: 041
     Dates: start: 20220928, end: 20220928
  2. OMNIPAQUE [Suspect]
     Active Substance: IOHEXOL
     Indication: Chest discomfort
  3. SODIUM CHLORIDE [Concomitant]
     Active Substance: SODIUM CHLORIDE
     Dosage: 35 ML, SINGLE
     Dates: start: 20220928, end: 20220928

REACTIONS (2)
  - Dysphoria [Recovered/Resolved]
  - Chest discomfort [Recovered/Resolved]

NARRATIVE: CASE EVENT DATE: 20220928
